FAERS Safety Report 7446648-1 (Version None)
Quarter: 2011Q2

REPORT INFORMATION
  Report Type: 
  Country: None (occurrence: None)
  Receive Date: 20110429
  Receipt Date: 20110422
  Transmission Date: 20111010
  Serious: Yes (Hospitalization, Other)
  Sender: FDA-Public Use
  Company Number: JP-CEPHALON-2011002108

PATIENT
  Sex: Male

DRUGS (8)
  1. BENDAMUSTINE HCL [Suspect]
     Indication: MANTLE CELL LYMPHOMA
     Route: 042
     Dates: start: 20110107, end: 20110402
  2. VOGLIBOSE [Concomitant]
  3. PIOGLITAZONE [Concomitant]
  4. ALLOPURINOL [Concomitant]
  5. METFFORMIN HYDROCHLORIDE [Concomitant]
  6. GLIMEPIRIDE [Concomitant]
  7. SITAGLIPTIN PHOSPHATE [Concomitant]
  8. MAGNESIUM OXIDE [Concomitant]

REACTIONS (5)
  - DIABETES MELLITUS [None]
  - INTERSTITIAL LUNG DISEASE [None]
  - PLATELET COUNT DECREASED [None]
  - WHITE BLOOD CELL COUNT DECREASED [None]
  - HERPES ZOSTER [None]
